FAERS Safety Report 17128497 (Version 1)
Quarter: 2019Q4

REPORT INFORMATION
  Report Type: Spontaneous
  Country: US (occurrence: US)
  Receive Date: 20191206
  Receipt Date: 20191206
  Transmission Date: 20200122
  Serious: No
  Sender: FDA-Public Use
  Company Number: None

PATIENT
  Age: 35 Year
  Sex: Female
  Weight: 68.4 kg

DRUGS (18)
  1. GABAPENTIN. [Concomitant]
     Active Substance: GABAPENTIN
  2. PROBIOTIC [Concomitant]
     Active Substance: PROBIOTICS NOS
  3. NITROFURANTOIN MONOHYDRATE MACROCRYSTALS [Suspect]
     Active Substance: NITROFURANTOIN\NITROFURANTOIN MONOHYDRATE
     Indication: URINARY TRACT INFECTION
     Dosage: ?          QUANTITY:14 CAPSULE(S);?
     Route: 048
     Dates: start: 20191201, end: 20191202
  4. SUMAVEL DOSE PRO [Concomitant]
  5. TREXIMET [Concomitant]
     Active Substance: NAPROXEN SODIUM\SUMATRIPTAN SUCCINATE
  6. CURCUMIN [Concomitant]
     Active Substance: CURCUMIN
  7. MALATE [Concomitant]
  8. LEVONO-E-ESTRAD [Concomitant]
  9. SUPER B COMPLEX [Concomitant]
     Active Substance: CYANOCOBALAMIN\DEXPANTHENOL\NIACINAMIDE\PYRIDOXINE HYDROCHLORIDE\RIBOFLAVIN 5^-PHOSPHATE SODIUM\THIAMINE HYDROCHLORIDE\VITAMIN B COMPLEX
  10. ZINC. [Concomitant]
     Active Substance: ZINC
  11. VITAMIN D3 [Concomitant]
     Active Substance: CHOLECALCIFEROL
  12. ACETAMINOPHEN. [Concomitant]
     Active Substance: ACETAMINOPHEN
  13. AIMOVIG [Concomitant]
     Active Substance: ERENUMAB-AOOE
  14. METRONIDAZOLE CREAM [Concomitant]
     Active Substance: METRONIDAZOLE
  15. TUMERIC [Concomitant]
     Active Substance: HERBALS\TURMERIC
  16. MELOXICAM. [Concomitant]
     Active Substance: MELOXICAM
  17. MAGNESIUM [Concomitant]
     Active Substance: MAGNESIUM
  18. CLARITIN [Concomitant]
     Active Substance: LORATADINE

REACTIONS (6)
  - Vulvovaginal burning sensation [None]
  - Hypersensitivity [None]
  - Vulvovaginal pain [None]
  - Pain [None]
  - Gait disturbance [None]
  - Urticaria [None]

NARRATIVE: CASE EVENT DATE: 20191202
